FAERS Safety Report 20838936 (Version 1)
Quarter: 2022Q2

REPORT INFORMATION
  Report Type: Spontaneous
  Country: US (occurrence: US)
  Receive Date: 20220517
  Receipt Date: 20220517
  Transmission Date: 20220720
  Serious: Yes (Other)
  Sender: FDA-Public Use
  Company Number: US-BAUSCH-BL-2022-006402

PATIENT
  Age: 70 Year
  Sex: Female

DRUGS (1)
  1. LACRISERT [Suspect]
     Active Substance: HYDROXYPROPYL CELLULOSE
     Indication: Product used for unknown indication
     Dosage: 1 INSERT PER EYE.
     Route: 047

REACTIONS (2)
  - Blindness [Unknown]
  - Therapy interrupted [Unknown]
